FAERS Safety Report 7289601-3 (Version None)
Quarter: 2011Q1

REPORT INFORMATION
  Report Type: 
  Country: None (occurrence: None)
  Receive Date: 20110214
  Receipt Date: 20110131
  Transmission Date: 20110831
  Serious: No
  Sender: FDA-Public Use
  Company Number: US-DENTSPLY-2011-0010-EUR

PATIENT
  Age: 63 Year
  Sex: Female
  Weight: 68.1 kg

DRUGS (9)
  1. BENZOCAINE [Concomitant]
     Dates: start: 20110127, end: 20110127
  2. VITAMIN D [Concomitant]
  3. FISH OIL [Concomitant]
  4. ORAQIX [Suspect]
     Dates: end: 20110127
  5. PLETAL [Concomitant]
  6. MULTI-VITAMINS [Concomitant]
  7. CALCIUM [Concomitant]
  8. METFORMIN HYDROCHLORIDE [Concomitant]
  9. LISINOPRIL [Concomitant]

REACTIONS (2)
  - SWOLLEN TONGUE [None]
  - LIP SWELLING [None]
